FAERS Safety Report 6701002-2 (Version None)
Quarter: 2010Q2

REPORT INFORMATION
  Report Type: 
  Country: None (occurrence: None)
  Receive Date: 20100428
  Receipt Date: 20100416
  Transmission Date: 20101027
  Serious: Yes (Other)
  Sender: FDA-Public Use
  Company Number: FR-PFIZER INC-2010048675

PATIENT
  Age: 91 Year
  Sex: Male

DRUGS (7)
  1. LYRICA [Suspect]
     Dosage: UNK
     Dates: start: 20100407
  2. NORSET [Concomitant]
  3. LANSOYL [Concomitant]
  4. PARACETAMOL [Concomitant]
  5. LOVENOX [Concomitant]
  6. HYPNOVEL [Concomitant]
  7. GLUCOSE [Concomitant]

REACTIONS (1)
  - BRADYCARDIA [None]
